FAERS Safety Report 10554430 (Version 1)
Quarter: 2014Q4

REPORT INFORMATION
  Report Type: Spontaneous
  Country: US (occurrence: None)
  Receive Date: 20141029
  Receipt Date: 20141029
  Transmission Date: 20150529
  Serious: Yes (Death)
  Sender: FDA-Public Use
  Company Number: None

PATIENT
  Age: 37 Year
  Sex: Female

DRUGS (1)
  1. CARISOPRODOL. [Suspect]
     Active Substance: CARISOPRODOL

REACTIONS (5)
  - Blood alcohol increased [None]
  - Aspiration [None]
  - Asphyxia [None]
  - Drug level above therapeutic [None]
  - Vomiting [None]

NARRATIVE: CASE EVENT DATE: 20140923
